FAERS Safety Report 20192478 (Version 1)
Quarter: 2021Q4

REPORT INFORMATION
  Report Type: Spontaneous
  Country: US (occurrence: US)
  Receive Date: 20211216
  Receipt Date: 20211216
  Transmission Date: 20220303
  Serious: No
  Sender: FDA-Public Use
  Company Number: US-ALLERGAN-2125208US

PATIENT
  Sex: Female

DRUGS (1)
  1. LO LOESTRIN FE [Suspect]
     Active Substance: ETHINYL ESTRADIOL\NORETHINDRONE ACETATE
     Indication: Product used for unknown indication
     Dosage: UNK

REACTIONS (8)
  - Menstruation delayed [Not Recovered/Not Resolved]
  - Irritability [Unknown]
  - Weight increased [Unknown]
  - Anxiety [Unknown]
  - Libido decreased [Unknown]
  - Abdominal distension [Unknown]
  - Depressed mood [Unknown]
  - Nausea [Unknown]
